FAERS Safety Report 9220884 (Version 1)
Quarter: 2013Q2

REPORT INFORMATION
  Report Type: Spontaneous
  Country: DE (occurrence: DE)
  Receive Date: 20130409
  Receipt Date: 20130409
  Transmission Date: 20140414
  Serious: Yes (Hospitalization, Congenital Anomaly, Other)
  Sender: FDA-Public Use
  Company Number: DE-TEVA-394918GER

PATIENT
  Age: 0 Year
  Sex: Male

DRUGS (8)
  1. LAMOTRIGINE [Suspect]
     Route: 064
  2. NEOVIN [Concomitant]
     Route: 064
  3. CELESTAN [Concomitant]
     Route: 064
  4. UTROGEST [Concomitant]
     Route: 064
  5. IBUPROFEN [Concomitant]
     Route: 064
  6. FRAGMIN P [Concomitant]
     Route: 064
  7. NIFEHEXAL [Concomitant]
     Route: 064
  8. TRACTOCILE [Concomitant]
     Route: 064

REACTIONS (4)
  - Transposition of the great vessels [Not Recovered/Not Resolved]
  - Patent ductus arteriosus [Not Recovered/Not Resolved]
  - Atrial septal defect [Not Recovered/Not Resolved]
  - Maternal drugs affecting foetus [None]
